FAERS Safety Report 10390253 (Version 2)
Quarter: 2014Q3

REPORT INFORMATION
  Report Type: Spontaneous
  Country: JP (occurrence: JP)
  Receive Date: 20140818
  Receipt Date: 20140829
  Transmission Date: 20150326
  Serious: Yes (Hospitalization)
  Sender: FDA-Public Use
  Company Number: JP-AMGEN-JPNSP2014062841

PATIENT
  Age: 49 Year
  Sex: Male

DRUGS (1)
  1. ROMIPLATE [Suspect]
     Active Substance: ROMIPLOSTIM
     Indication: IMMUNE THROMBOCYTOPENIC PURPURA
     Dosage: 3.5 MUG/KG, UNK
     Route: 058

REACTIONS (2)
  - Immune thrombocytopenic purpura [Recovered/Resolved]
  - Pneumonia bacterial [Recovered/Resolved]
